FAERS Safety Report 17175283 (Version 1)
Quarter: 2019Q4

REPORT INFORMATION
  Report Type: Spontaneous
  Country: IT (occurrence: IT)
  Receive Date: 20191219
  Receipt Date: 20191219
  Transmission Date: 20200122
  Serious: Yes (Other)
  Sender: FDA-Public Use
  Company Number: IT-MYLANLABS-2019M1126045

PATIENT
  Age: 6 Year
  Sex: Female

DRUGS (2)
  1. PREDNISONE. [Suspect]
     Active Substance: PREDNISONE
     Indication: NEPHROTIC SYNDROME
     Dosage: UNK
     Route: 048
  2. RITUXIMAB. [Suspect]
     Active Substance: RITUXIMAB
     Indication: NEPHROTIC SYNDROME
     Dosage: 375MG/SQ.METER/AT THE FIRST INFUSION
     Route: 041

REACTIONS (4)
  - Pneumonia [Unknown]
  - Thrombocytopenia [Unknown]
  - Blood immunoglobulin A decreased [Unknown]
  - Hypogammaglobulinaemia [Unknown]
